FAERS Safety Report 18558744 (Version 1)
Quarter: 2020Q4

REPORT INFORMATION
  Report Type: Spontaneous
  Country: IT (occurrence: IT)
  Receive Date: 20201130
  Receipt Date: 20201130
  Transmission Date: 20210114
  Serious: Yes (Other)
  Sender: FDA-Public Use
  Company Number: IT-LUPIN PHARMACEUTICALS INC.-2020-09468

PATIENT
  Age: 21 Year
  Sex: Male

DRUGS (8)
  1. SERTRALINE [Suspect]
     Active Substance: SERTRALINE HYDROCHLORIDE
     Indication: MAJOR DEPRESSION
     Dosage: 100 MILLIGRAM, QD, 2 YEARS
     Route: 065
  2. BUPROPION. [Suspect]
     Active Substance: BUPROPION
     Indication: SEXUAL DYSFUNCTION
     Dosage: UNK
     Route: 065
  3. BUSPIRONE [Suspect]
     Active Substance: BUSPIRONE HYDROCHLORIDE
     Indication: SEXUAL DYSFUNCTION
     Dosage: UNK
     Route: 065
  4. TRAZODONE [Suspect]
     Active Substance: TRAZODONE HYDROCHLORIDE
     Indication: SEXUAL DYSFUNCTION
     Dosage: UNK
     Route: 065
  5. SERTRALINE [Suspect]
     Active Substance: SERTRALINE HYDROCHLORIDE
     Dosage: UNK (REINTRODUCED)
     Route: 065
  6. PRAMIPEXOLE. [Suspect]
     Active Substance: PRAMIPEXOLE
     Indication: SEXUAL DYSFUNCTION
     Dosage: 1 MILLIGRAM, QD
     Route: 065
  7. ARIPIPRAZOLE. [Suspect]
     Active Substance: ARIPIPRAZOLE
     Indication: SEXUAL DYSFUNCTION
     Dosage: UNK
     Route: 065
  8. AMISULPRIDE [Suspect]
     Active Substance: AMISULPRIDE
     Indication: SEXUAL DYSFUNCTION
     Dosage: UNK
     Route: 065

REACTIONS (19)
  - Drug withdrawal syndrome [Unknown]
  - Persistent depressive disorder [Unknown]
  - Erectile dysfunction [Unknown]
  - Loss of libido [Unknown]
  - Attention deficit hyperactivity disorder [Unknown]
  - Memory impairment [Unknown]
  - Hypoaesthesia [Unknown]
  - Abnormal behaviour [Unknown]
  - Drug ineffective [Unknown]
  - Adverse drug reaction [Unknown]
  - Irritability [Unknown]
  - Genital anaesthesia [Unknown]
  - Emotional disorder [Unknown]
  - Dissociation [Unknown]
  - Toxicity to various agents [Unknown]
  - Generalised anxiety disorder [Unknown]
  - Premature ejaculation [Unknown]
  - Obsessive-compulsive disorder [Unknown]
  - Sexual dysfunction [Recovering/Resolving]
